FAERS Safety Report 10190866 (Version 1)
Quarter: 2014Q2

REPORT INFORMATION
  Report Type: Spontaneous
  Country: US (occurrence: None)
  Receive Date: 20140521
  Receipt Date: 20140521
  Transmission Date: 20141212
  Serious: Yes (Disabling, Other)
  Sender: FDA-Public Use
  Company Number: None

PATIENT
  Age: 57 Year
  Sex: Female
  Weight: 137 kg

DRUGS (17)
  1. CALCIUM CITRATE WITH VITAMIN D [Suspect]
     Indication: MINERAL SUPPLEMENTATION
     Dosage: 2 DOSES, 2 TABLETS
     Route: 048
  2. CALCIUM CITRATE WITH VITAMIN D [Suspect]
     Indication: PARATHYROIDECTOMY
     Dosage: 2 DOSES, 2 TABLETS
     Route: 048
  3. IVC [Concomitant]
  4. TITANIUM IMPLANTS [Concomitant]
  5. LEVOTHYROXINE [Concomitant]
  6. TENORMIN [Concomitant]
  7. WARFARIN [Concomitant]
  8. FOLIC ACID [Concomitant]
  9. MOBIC [Concomitant]
  10. ULTRAM [Concomitant]
  11. SULFASALAZINE [Concomitant]
  12. COZAAR [Concomitant]
  13. QVAR [Concomitant]
  14. ALBUTEROL [Concomitant]
  15. EPI-PEN [Concomitant]
  16. TYLENOL [Concomitant]
  17. BENADRYL [Concomitant]

REACTIONS (1)
  - Drug hypersensitivity [None]
